FAERS Safety Report 8431206-2 (Version None)
Quarter: 2012Q2

REPORT INFORMATION
  Report Type: 
  Country: None (occurrence: None)
  Receive Date: 20120612
  Receipt Date: 20120611
  Transmission Date: 20120825
  Serious: Yes (Death)
  Sender: FDA-Public Use
  Company Number: CHNY2012IE000581

PATIENT
  Sex: Female

DRUGS (4)
  1. SCOPALAMINIE HYDROBROMIDE [Suspect]
     Indication: VOMITING
     Dosage: 0.5 DF, Q72H
     Route: 062
  2. CYCLOPHOSPHAMIDE [Concomitant]
     Indication: EWING'S SARCOMA METASTATIC
  3. SCOPALAMINIE HYDROBROMIDE [Suspect]
     Indication: NAUSEA
     Dosage: 1 DF, Q72H
     Route: 062
  4. TOPOTECAN [Concomitant]
     Indication: EWING'S SARCOMA METASTATIC

REACTIONS (4)
  - MYDRIASIS [None]
  - DISEASE PROGRESSION [None]
  - EWING'S SARCOMA METASTATIC [None]
  - VISUAL IMPAIRMENT [None]
